FAERS Safety Report 4412135-8 (Version None)
Quarter: 2004Q3

REPORT INFORMATION
  Report Type: 
  Country: None (occurrence: None)
  Receive Date: 20040729
  Receipt Date: 20040729
  Transmission Date: 20050211
  Serious: Yes (Other)
  Sender: FDA-Public Use
  Company Number: None

PATIENT
  Sex: Male

DRUGS (1)
  1. ZOLADEX [Suspect]
     Indication: PROSTATE CANCER
     Dosage: 10.8 MG Q3MO SUBCUTANEOUS
     Route: 058
     Dates: start: 20010212, end: 20040728

REACTIONS (2)
  - DEVICE FAILURE [None]
  - MEDICATION ERROR [None]
